FAERS Safety Report 11298996 (Version 1)
Quarter: 2015Q3

REPORT INFORMATION
  Report Type: Spontaneous
  Country: US (occurrence: US)
  Receive Date: 20150722
  Receipt Date: 20150722
  Transmission Date: 20151125
  Serious: No
  Sender: FDA-Public Use
  Company Number: US-ELI_LILLY_AND_COMPANY-US201206005985

PATIENT
  Sex: Male

DRUGS (3)
  1. EFFIENT [Suspect]
     Active Substance: PRASUGREL HYDROCHLORIDE
     Indication: MYOCARDIAL INFARCTION
     Dosage: 10 MG, QD
     Dates: start: 20100611
  2. LIVALO [Concomitant]
     Active Substance: PITAVASTATIN CALCIUM
  3. NIACIN. [Concomitant]
     Active Substance: NIACIN

REACTIONS (2)
  - Surgery [Not Recovered/Not Resolved]
  - Temperature intolerance [Not Recovered/Not Resolved]
